FAERS Safety Report 9127059 (Version 1)
Quarter: 2013Q1

REPORT INFORMATION
  Report Type: Spontaneous
  Country: US (occurrence: US)
  Receive Date: 20130125
  Receipt Date: 20130125
  Transmission Date: 20140127
  Serious: Yes (Other)
  Sender: FDA-Public Use
  Company Number: US-RB-048953-13

PATIENT
  Age: 10 Year
  Sex: Female

DRUGS (3)
  1. MUCINEX CHILDREN^S MULTI-SYMPTOM COLD VERY BERRY [Suspect]
     Indication: PRODUCT USED FOR UNKNOWN INDICATION
     Dosage: CHILD WAS GIVEN LESS THAN 10ML
     Route: 048
  2. MUCINEX CHILDREN^S MULTI-SYMPTOM COLD VERY BERRY [Suspect]
  3. MUCINEX CHILDREN^S MULTI-SYMPTOM COLD VERY BERRY (PHENYL HCL) [Suspect]

REACTIONS (3)
  - Hallucination, auditory [Unknown]
  - Insomnia [Unknown]
  - Dizziness [Unknown]
